FAERS Safety Report 26050845 (Version 1)
Quarter: 2025Q4

REPORT INFORMATION
  Report Type: Spontaneous
  Country: US (occurrence: US)
  Receive Date: 20251116
  Receipt Date: 20251116
  Transmission Date: 20260118
  Serious: Yes (Other)
  Sender: BAXTER
  Company Number: US-BAXTER-2025BAX023822

PATIENT
  Age: 4 Year
  Sex: Male

DRUGS (2)
  1. CARDENE [Interacting]
     Active Substance: NICARDIPINE HYDROCHLORIDE
     Indication: Hypertension
     Route: 042
  2. TACROLIMUS [Interacting]
     Active Substance: TACROLIMUS
     Route: 065

REACTIONS (10)
  - Acute kidney injury [None]
  - Hypervolaemia [Recovered/Resolved]
  - Blood creatinine increased [Recovered/Resolved]
  - Anuria [Recovered/Resolved]
  - Respiratory failure [Recovered/Resolved]
  - Nephropathy toxic [Recovered/Resolved]
  - Drug interaction [Recovered/Resolved]
  - Vascular compression [Recovered/Resolved]
  - Hepatic enzyme increased [Recovered/Resolved]
  - Haematoma [Recovered/Resolved]
